FAERS Safety Report 15699248 (Version 1)
Quarter: 2018Q4

REPORT INFORMATION
  Report Type: Spontaneous
  Country: DE (occurrence: DE)
  Receive Date: 20181207
  Receipt Date: 20181207
  Transmission Date: 20190205
  Serious: Yes (Other)
  Sender: FDA-Public Use
  Company Number: DE-MYLANLABS-2018M1089532

PATIENT
  Age: 36 Year
  Sex: Female

DRUGS (3)
  1. AZATHIOPRINE. [Suspect]
     Active Substance: AZATHIOPRINE
     Indication: CROHN^S DISEASE
     Route: 065
  2. ADALIMUMAB [Suspect]
     Active Substance: ADALIMUMAB
     Indication: CROHN^S DISEASE
     Route: 065
  3. INFLIXIMAB [Suspect]
     Active Substance: INFLIXIMAB
     Indication: CROHN^S DISEASE
     Route: 050
     Dates: start: 200806

REACTIONS (5)
  - Dermatitis psoriasiform [Recovered/Resolved with Sequelae]
  - Staphylococcal infection [Unknown]
  - Treatment failure [Unknown]
  - Alopecia scarring [Recovered/Resolved with Sequelae]
  - Paradoxical drug reaction [Recovering/Resolving]
